FAERS Safety Report 13330718 (Version 1)
Quarter: 2017Q1

REPORT INFORMATION
  Report Type: Spontaneous
  Country: US (occurrence: US)
  Receive Date: 20170314
  Receipt Date: 20170314
  Transmission Date: 20170428
  Serious: No
  Sender: FDA-Public Use
  Company Number: US-TEVA-725056ACC

PATIENT
  Age: 53 Year
  Sex: Female
  Weight: 89.89 kg

DRUGS (3)
  1. OXYCODONE HYDROCHLORIDE TABLETS [Suspect]
     Active Substance: OXYCODONE HYDROCHLORIDE
     Indication: PAIN
     Dates: start: 2013
  2. CARISOPRODOL. [Concomitant]
     Active Substance: CARISOPRODOL
  3. TRILEPTAL [Concomitant]
     Active Substance: OXCARBAZEPINE

REACTIONS (2)
  - Drug screen negative [Recovered/Resolved]
  - Inappropriate schedule of drug administration [Unknown]

NARRATIVE: CASE EVENT DATE: 20161013
